APPROVED DRUG PRODUCT: MELPHALAN HYDROCHLORIDE
Active Ingredient: MELPHALAN HYDROCHLORIDE
Strength: EQ 50MG BASE/VIAL
Dosage Form/Route: INJECTABLE;INJECTION
Application: A090303 | Product #001 | TE Code: AP
Applicant: HIKMA PHARMACEUTICALS USA INC
Approved: Oct 28, 2010 | RLD: No | RS: No | Type: RX